FAERS Safety Report 4555802-8 (Version None)
Quarter: 2005Q1

REPORT INFORMATION
  Report Type: 
  Country: None (occurrence: None)
  Receive Date: 20050112
  Receipt Date: 20040109
  Transmission Date: 20050727
  Serious: Yes (Hospitalization)
  Sender: FDA-Public Use
  Company Number: PHEH2004US00697

PATIENT
  Age: 47 Year
  Sex: Male

DRUGS (1)
  1. SANDIMMUNE [Suspect]
     Dosage: 484 MG, ONCE/SINGLE, IV INFUSION

REACTIONS (6)
  - ANAPHYLACTIC REACTION [None]
  - DYSPNOEA [None]
  - FEELING HOT [None]
  - FLUSHING [None]
  - RASH GENERALISED [None]
  - THROAT TIGHTNESS [None]
